FAERS Safety Report 21394833 (Version 1)
Quarter: 2022Q3

REPORT INFORMATION
  Report Type: Spontaneous
  Country: BR (occurrence: BR)
  Receive Date: 20220930
  Receipt Date: 20220930
  Transmission Date: 20221026
  Serious: Yes (Other)
  Sender: FDA-Public Use
  Company Number: BR-CELLTRION INC.-2022BR015660

PATIENT

DRUGS (1)
  1. TRUXIMA [Suspect]
     Active Substance: RITUXIMAB-ABBS
     Indication: Neuromyelitis optica spectrum disorder
     Dosage: ROA: ENDOVENOUS
     Route: 042

REACTIONS (2)
  - Neuromyelitis optica spectrum disorder [Unknown]
  - Off label use [Unknown]
